FAERS Safety Report 4958918-7 (Version None)
Quarter: 2006Q1

REPORT INFORMATION
  Report Type: 
  Country: None (occurrence: None)
  Receive Date: 20060324
  Receipt Date: 20060315
  Transmission Date: 20060701
  Serious: Yes (Hospitalization, Other)
  Sender: FDA-Public Use
  Company Number: WAES 0411GBR00095

PATIENT
  Age: 72 Year
  Sex: Female

DRUGS (7)
  1. VIOXX [Suspect]
     Indication: NEOPLASM PROPHYLAXIS
     Dosage: 25 MG/DAILY PO
     Route: 048
     Dates: start: 20031103, end: 20041004
  2. ASPIRIN [Concomitant]
  3. ATENOLOL [Concomitant]
  4. GLICLAZIDE [Concomitant]
  5. LANSOPRAZOLE [Concomitant]
  6. NITROGLYCERIN [Concomitant]
  7. SIMVASTATIN [Concomitant]

REACTIONS (11)
  - ANGINA PECTORIS [None]
  - BLOOD SODIUM DECREASED [None]
  - C-REACTIVE PROTEIN INCREASED [None]
  - COLON CANCER [None]
  - COLON CANCER RECURRENT [None]
  - GAMMA-GLUTAMYLTRANSFERASE INCREASED [None]
  - HAEMOGLOBIN DECREASED [None]
  - MONOCYTE COUNT INCREASED [None]
  - MYOCARDIAL ISCHAEMIA [None]
  - PAIN [None]
  - PLATELET COUNT INCREASED [None]
